FAERS Safety Report 24154090 (Version 2)
Quarter: 2024Q3

REPORT INFORMATION
  Report Type: Spontaneous
  Country: US (occurrence: US)
  Receive Date: 20240730
  Receipt Date: 20240810
  Transmission Date: 20241016
  Serious: Yes (Other)
  Sender: TEVA
  Company Number: US-TEVA-VS-3224071

PATIENT
  Age: 38 Year
  Sex: Female

DRUGS (6)
  1. MEFLOQUINE [Suspect]
     Active Substance: MEFLOQUINE
     Indication: Plasmodium falciparum infection
     Route: 065
  2. PREDNISONE [Suspect]
     Active Substance: PREDNISONE
     Indication: Nervous system disorder prophylaxis
     Dosage: LOW DOSE
     Route: 048
  3. PREDNISONE [Suspect]
     Active Substance: PREDNISONE
     Indication: Nervous system disorder prophylaxis
     Dosage: 10 DAYS COURSE
     Route: 065
  4. HYDROCORTISONE [Suspect]
     Active Substance: HYDROCORTISONE\HYDROCORTISONE ACETATE
     Indication: Nervous system disorder prophylaxis
     Dosage: 3 TIMES DAILY
     Route: 042
  5. CARBAMAZEPINE [Suspect]
     Active Substance: CARBAMAZEPINE
     Indication: Nervous system disorder prophylaxis
     Route: 065
  6. PREGABALIN [Suspect]
     Active Substance: PREGABALIN
     Indication: Nervous system disorder prophylaxis
     Route: 065

REACTIONS (2)
  - Glossopharyngeal neuralgia [Recovering/Resolving]
  - Drug ineffective [Unknown]
